FAERS Safety Report 19631968 (Version 1)
Quarter: 2021Q3

REPORT INFORMATION
  Report Type: Spontaneous
  Country: FR (occurrence: FR)
  Receive Date: 20210729
  Receipt Date: 20210729
  Transmission Date: 20211014
  Serious: Yes (Hospitalization)
  Sender: FDA-Public Use
  Company Number: FR-ASTRAZENECA-2021A633209

PATIENT
  Sex: Male

DRUGS (5)
  1. CRACK (COCAINE BASEE) [Suspect]
     Active Substance: COCAINE
     Route: 065
  2. LYRICA [Suspect]
     Active Substance: PREGABALIN
     Route: 065
  3. MDMA [Suspect]
     Active Substance: MIDOMAFETAMINE
     Route: 065
  4. QUETIAPINE. [Suspect]
     Active Substance: QUETIAPINE
     Route: 048
  5. BUPRENORPHINE. [Suspect]
     Active Substance: BUPRENORPHINE
     Route: 065

REACTIONS (4)
  - Rhabdomyolysis [Recovered/Resolved]
  - Bradypnoea [Recovered/Resolved]
  - Coma [Recovered/Resolved with Sequelae]
  - Hepatic cytolysis [Recovered/Resolved]
